FAERS Safety Report 19632039 (Version 2)
Quarter: 2021Q4

REPORT INFORMATION
  Report Type: Spontaneous
  Country: DE (occurrence: DE)
  Receive Date: 20210728
  Receipt Date: 20211210
  Transmission Date: 20220303
  Serious: Yes (Hospitalization, Other)
  Sender: FDA-Public Use
  Company Number: DE-VIWITPHARMA-2021VWTLIT00037

PATIENT
  Age: 39 Year
  Sex: Female

DRUGS (5)
  1. LEVETIRACETAM [Suspect]
     Active Substance: LEVETIRACETAM
     Indication: Partial seizures
     Route: 065
  2. ACETAMINOPHEN [Concomitant]
     Active Substance: ACETAMINOPHEN
     Indication: Headache
     Dosage: 2000 MG DAILY
     Route: 065
  3. METAMIZOLE [Concomitant]
     Active Substance: METAMIZOLE
     Indication: Headache
     Route: 065
  4. PREDNISOLONE [Interacting]
     Active Substance: PREDNISOLONE
     Indication: Drug-induced liver injury
     Dosage: 1 MG PER KILOGRAM BODY WEIGHT
     Route: 065
  5. URSODIOL [Interacting]
     Active Substance: URSODIOL
     Indication: Drug-induced liver injury
     Route: 065

REACTIONS (5)
  - Drug-induced liver injury [Recovering/Resolving]
  - Cholelithiasis [Recovering/Resolving]
  - Vomiting [Recovering/Resolving]
  - Jaundice [Recovering/Resolving]
  - Hepatic necrosis [Recovering/Resolving]
